FAERS Safety Report 6905748-2 (Version None)
Quarter: 2010Q3

REPORT INFORMATION
  Report Type: 
  Country: None (occurrence: None)
  Receive Date: 20100804
  Receipt Date: 20100730
  Transmission Date: 20110219
  Serious: Yes (Hospitalization)
  Sender: FDA-Public Use
  Company Number: JP-BAYER-201010959BYL

PATIENT
  Age: 76 Year
  Sex: Male

DRUGS (11)
  1. NEXAVAR [Suspect]
     Indication: HEPATIC NEOPLASM MALIGNANT
     Dosage: UNIT DOSE: 200 MG
     Route: 048
     Dates: start: 20100209, end: 20100215
  2. TAKEPRON [Concomitant]
     Indication: GASTRIC ULCER
     Route: 065
  3. ZYLORIC [Concomitant]
     Indication: HYPERURICAEMIA
     Route: 048
  4. URSO 250 [Concomitant]
     Indication: HEPATITIS
     Route: 048
  5. MUCOSTA [Concomitant]
     Indication: GASTRIC ULCER
     Route: 048
  6. NEUMETHYCOLE [Concomitant]
     Indication: NEUROPATHY PERIPHERAL
     Route: 048
  7. NORVASC [Concomitant]
     Indication: HYPERTENSION
     Route: 048
  8. LIVACT [Concomitant]
     Indication: HYPOALBUMINAEMIA
     Route: 048
  9. MONILAC [Concomitant]
     Indication: HEPATIC ENCEPHALOPATHY
     Route: 048
  10. LASIX [Concomitant]
     Indication: ASCITES
     Route: 065
  11. ALDACTONE [Concomitant]
     Indication: ASCITES
     Route: 048

REACTIONS (2)
  - HEPATIC FAILURE [None]
  - PYREXIA [None]
